FAERS Safety Report 5509230-9 (Version None)
Quarter: 2007Q4

REPORT INFORMATION
  Report Type: 
  Country: None (occurrence: None)
  Receive Date: 20071107
  Receipt Date: 20071105
  Transmission Date: 20080405
  Serious: Yes (Hospitalization, Other)
  Sender: FDA-Public Use
  Company Number: JP-BOEHRINGER INGELHEIM PHARMACEUTICALS, INC.-2007-BP-22863NB

PATIENT
  Sex: Male
  Weight: 73.9 kg

DRUGS (7)
  1. MICARDIS [Suspect]
     Indication: HYPERTENSION
     Route: 048
     Dates: start: 20060414, end: 20060822
  2. NOVORAPID MIX [Concomitant]
     Route: 058
     Dates: start: 20050401
  3. LANTUS [Concomitant]
     Route: 058
     Dates: start: 20060314
  4. DIBETOS [Concomitant]
     Route: 048
     Dates: start: 20030502
  5. BASEN [Concomitant]
     Route: 048
     Dates: start: 20040401
  6. LIPITOR [Concomitant]
     Route: 048
     Dates: start: 20040106
  7. GLUFAST [Concomitant]
     Route: 048
     Dates: start: 20040914

REACTIONS (1)
  - GASTRIC CANCER [None]
